FAERS Safety Report 8187691-7 (Version None)
Quarter: 2012Q1

REPORT INFORMATION
  Report Type: 
  Country: None (occurrence: None)
  Receive Date: 20120306
  Receipt Date: 20120116
  Transmission Date: 20120608
  Serious: No
  Sender: FDA-Public Use
  Company Number: US-GLAXOSMITHKLINE-A0811073A

PATIENT
  Age: 53 Year
  Sex: Female

DRUGS (6)
  1. LAMICTAL [Suspect]
     Indication: BIPOLAR DISORDER
     Dosage: 200MG PER DAY
     Route: 048
     Dates: start: 20070101
  2. LIPITOR [Concomitant]
  3. PROVIGIL [Concomitant]
  4. METOPROLOL SUCCINATE [Concomitant]
  5. SYNTHROID [Concomitant]
  6. AMLODIPINE [Concomitant]

REACTIONS (3)
  - CONTUSION [None]
  - DRUG INEFFECTIVE [None]
  - PYREXIA [None]
